FAERS Safety Report 7753626-1 (Version None)
Quarter: 2011Q3

REPORT INFORMATION
  Report Type: 
  Country: None (occurrence: None)
  Receive Date: 20110915
  Receipt Date: 20110908
  Transmission Date: 20111222
  Serious: Yes (Life-Threatening, Hospitalization)
  Sender: FDA-Public Use
  Company Number: GB-GLAXOSMITHKLINE-B0745610A

PATIENT
  Age: 79 Year
  Sex: Female

DRUGS (14)
  1. CITALOPRAM HYDROBROMIDE [Concomitant]
  2. TRAVOPROST [Concomitant]
  3. ADCAL-D3 [Concomitant]
  4. ACETAMINOPHEN [Concomitant]
  5. ZOLPIDEM [Concomitant]
  6. LAMOTRIGINE [Suspect]
     Dosage: 50MG PER DAY
     Route: 048
     Dates: start: 20110806, end: 20110810
  7. ASPIRIN [Concomitant]
  8. BISOPROLOL FUMARATE [Concomitant]
  9. BENDROFLUMETHIAZIDE [Concomitant]
  10. OMEPRAZOLE [Concomitant]
  11. LAMOTRIGINE [Suspect]
     Indication: CONVULSION
     Dosage: 100MG PER DAY
     Route: 048
     Dates: start: 20110811, end: 20110822
  12. PERINDOPRIL ERBUMINE [Concomitant]
  13. ACETAMINOPHEN AND CODEINE PHOSPHATE [Concomitant]
  14. PHENYTOIN [Concomitant]

REACTIONS (9)
  - PALLOR [None]
  - NEUTROPENIC SEPSIS [None]
  - PYREXIA [None]
  - RASH ERYTHEMATOUS [None]
  - HAEMOGLOBIN DECREASED [None]
  - ESCHERICHIA SEPSIS [None]
  - PLATELET COUNT DECREASED [None]
  - SKIN WARM [None]
  - NEUTROPHIL COUNT DECREASED [None]
